FAERS Safety Report 12698250 (Version 2)
Quarter: 2017Q2

REPORT INFORMATION
  Report Type: Spontaneous
  Country: US (occurrence: US)
  Receive Date: 20160830
  Receipt Date: 20170406
  Transmission Date: 20170830
  Serious: No
  Sender: FDA-Public Use
  Company Number: US-JNJFOC-20160728231

PATIENT
  Sex: Male

DRUGS (2)
  1. RISPERDAL [Suspect]
     Active Substance: RISPERIDONE
     Indication: DISTURBANCE IN SOCIAL BEHAVIOUR
     Dosage: VARIABLE DOSES OF 0.25 MG, 1 MG AND 2 MG
     Route: 048
     Dates: start: 2011, end: 2014
  2. RISPERDAL [Suspect]
     Active Substance: RISPERIDONE
     Indication: ATTENTION DEFICIT/HYPERACTIVITY DISORDER
     Dosage: VARIABLE DOSES OF 0.25 MG, 1 MG AND 2 MG
     Route: 048
     Dates: start: 2011, end: 2014

REACTIONS (4)
  - Hyperphagia [Unknown]
  - Obesity [Unknown]
  - Gynaecomastia [Unknown]
  - Aggression [Unknown]

NARRATIVE: CASE EVENT DATE: 2011
